FAERS Safety Report 11156386 (Version 1)
Quarter: 2015Q2

REPORT INFORMATION
  Report Type: Report from Study
  Country: US (occurrence: US)
  Receive Date: 20150602
  Receipt Date: 20150602
  Transmission Date: 20150821
  Serious: Yes (Other)
  Sender: FDA-Public Use
  Company Number: US-PFIZER INC-2015183069

PATIENT
  Age: 9 Year

DRUGS (1)
  1. SILDENAFIL CITRATE. [Suspect]
     Active Substance: SILDENAFIL CITRATE
     Indication: ARTERIOVENOUS MALFORMATION
     Dosage: 10-20 MG, 3X/DAY

REACTIONS (3)
  - Haemorrhage [Unknown]
  - Coagulopathy [Unknown]
  - Drug ineffective for unapproved indication [Unknown]
